FAERS Safety Report 21726626 (Version 2)
Quarter: 2022Q4

REPORT INFORMATION
  Report Type: Report from Study
  Country: US (occurrence: US)
  Receive Date: 20221214
  Receipt Date: 20221220
  Transmission Date: 20230113
  Serious: No
  Sender: FDA-Public Use
  Company Number: US-002147023-NVSC2022US288392

PATIENT
  Sex: Female

DRUGS (2)
  1. MAYZENT [Suspect]
     Active Substance: SIPONIMOD
     Indication: Multiple sclerosis
     Dosage: UNK UNK, QD
     Route: 048
     Dates: start: 20220311
  2. MAYZENT [Suspect]
     Active Substance: SIPONIMOD
     Dosage: UNK (EVERY OTHER DAY)
     Route: 048

REACTIONS (1)
  - White blood cell count decreased [Unknown]
